FAERS Safety Report 5338550-6 (Version None)
Quarter: 2007Q2

REPORT INFORMATION
  Report Type: 
  Country: None (occurrence: None)
  Receive Date: 20070322
  Receipt Date: 20060323
  Transmission Date: 20071010
  Serious: Yes (Other)
  Sender: FDA-Public Use
  Company Number: 200610238BCC

PATIENT
  Age: 62 Year
  Sex: Female
  Weight: 90.7194 kg

DRUGS (4)
  1. ALEVE (CAPLET) [Suspect]
     Indication: ARTHRALGIA
     Dosage: 220-440 MG, IRR, ORAL
     Route: 048
     Dates: start: 20050801
  2. VITAMIN E [Concomitant]
  3. COD LIVER OIL [Concomitant]
  4. CENTRUM SILVER [Concomitant]

REACTIONS (6)
  - DYSPHAGIA [None]
  - EROSIVE OESOPHAGITIS [None]
  - GASTRIC ULCER [None]
  - GASTROOESOPHAGEAL REFLUX DISEASE [None]
  - HIATUS HERNIA [None]
  - STOMACH DISCOMFORT [None]
